FAERS Safety Report 25601510 (Version 2)
Quarter: 2025Q3

REPORT INFORMATION
  Report Type: Spontaneous
  Country: US (occurrence: US)
  Receive Date: 20250724
  Receipt Date: 20250804
  Transmission Date: 20251020
  Serious: Yes (Other)
  Sender: RADIUS PHARM
  Company Number: US-RADIUS HEALTH INC.-US-RADIUS-25051212

PATIENT
  Sex: Female

DRUGS (1)
  1. TYMLOS [Suspect]
     Active Substance: ABALOPARATIDE
     Indication: Product used for unknown indication
     Dosage: 80 MICROGRAM, QD
     Route: 058
     Dates: start: 2025

REACTIONS (9)
  - Colitis ulcerative [Unknown]
  - Eating disorder [Unknown]
  - Weight decreased [Unknown]
  - Alopecia [Unknown]
  - Flushing [Unknown]
  - Abdominal discomfort [Unknown]
  - Decreased appetite [Unknown]
  - Nausea [Unknown]
  - Palpitations [Unknown]

NARRATIVE: CASE EVENT DATE: 20250101
